FAERS Safety Report 10646409 (Version 1)
Quarter: 2014Q4

REPORT INFORMATION
  Report Type: Spontaneous
  Country: FI (occurrence: FI)
  Receive Date: 20141211
  Receipt Date: 20141211
  Transmission Date: 20150529
  Serious: Yes (Hospitalization)
  Sender: FDA-Public Use
  Company Number: FI-PFIZER INC-2014335487

PATIENT
  Age: 54 Year
  Sex: Female

DRUGS (10)
  1. NITRO [Suspect]
     Active Substance: NITROGLYCERIN
     Dosage: 0.5 MG, AS NEEDED
     Route: 065
  2. MONTELUKAST [Suspect]
     Active Substance: MONTELUKAST SODIUM
     Dosage: 10 MG, DAILY
     Route: 065
  3. PREDNISOLON [Suspect]
     Active Substance: PREDNISOLONE
     Dosage: 30 MG, DAILY
     Route: 065
  4. BURANA [Suspect]
     Active Substance: IBUPROFEN
     Dosage: UNK UNK, AS NEEDED
     Route: 065
  5. SOMAC [Suspect]
     Active Substance: PANTOPRAZOLE SODIUM
     Dosage: 1-2 TABLETS PER DAY
     Route: 065
  6. TILADE [Suspect]
     Active Substance: NEDOCROMIL SODIUM
     Indication: COUGH
     Dosage: UNK, 2 MG/DOS PRESSURISED INHALATION SUSPENSION WITH THE DOSE OF 4-8 INHALATIONS PER DAY FOR COUGH
  7. SYMBICORT [Suspect]
     Active Substance: BUDESONIDE\FORMOTEROL FUMARATE DIHYDRATE
     Dosage: 2 INHALATIONS 2X/DAY
  8. SPIRIVA [Suspect]
     Active Substance: TIOTROPIUM BROMIDE MONOHYDRATE
     Dosage: 0.4 MG, DAILY
  9. PANACOD [Suspect]
     Active Substance: ACETAMINOPHEN\CODEINE PHOSPHATE
     Dosage: UNK, 500/30 MG TABLETS (NOS) AT UNKNOWN DOSE AS NEEDED
     Route: 065
  10. PREDNISOLON [Suspect]
     Active Substance: PREDNISOLONE
     Dosage: UNK UNK, AS NEEDED
     Route: 065

REACTIONS (4)
  - Asthma [Not Recovered/Not Resolved]
  - Cough [Not Recovered/Not Resolved]
  - Poor quality sleep [Not Recovered/Not Resolved]
  - Chest pain [Not Recovered/Not Resolved]
